FAERS Safety Report 22211252 (Version 1)
Quarter: 2023Q2

REPORT INFORMATION
  Report Type: Spontaneous
  Country: FR (occurrence: FR)
  Receive Date: 20230414
  Receipt Date: 20230414
  Transmission Date: 20230722
  Serious: Yes (Hospitalization)
  Sender: FDA-Public Use
  Company Number: None

PATIENT
  Age: 40 Year
  Sex: Female
  Weight: 64 kg

DRUGS (17)
  1. DAPTOMYCIN [Suspect]
     Active Substance: DAPTOMYCIN
     Indication: Pneumonia
     Dates: start: 20230206, end: 20230214
  2. AVIBACTAM SODIUM\CEFTAZIDIME [Suspect]
     Active Substance: AVIBACTAM SODIUM\CEFTAZIDIME
     Indication: Pneumonia
     Dosage: STRENGTH: 2 G/0.5 G
     Dates: start: 20230206, end: 20230214
  3. PHENOBARBITAL [Suspect]
     Active Substance: PHENOBARBITAL
     Indication: Status epilepticus
     Dates: start: 20221227
  4. FUROSEMIDE [Concomitant]
     Active Substance: FUROSEMIDE
     Indication: Oliguria
     Dates: start: 20230217, end: 20230217
  5. NIMODIPINE [Concomitant]
     Active Substance: NIMODIPINE
     Indication: Product used for unknown indication
     Dates: start: 20230208, end: 20230213
  6. SUFENTANIL CITRATE [Concomitant]
     Active Substance: SUFENTANIL CITRATE
     Indication: Analgesic intervention supportive therapy
     Dates: start: 20230207, end: 20230214
  7. PERAMPANEL [Concomitant]
     Active Substance: PERAMPANEL
     Indication: Status epilepticus
     Dates: start: 20230131
  8. CARBAMAZEPINE [Concomitant]
     Active Substance: CARBAMAZEPINE
     Indication: Status epilepticus
     Dates: start: 20230131
  9. CALCIPARINE [Concomitant]
     Active Substance: HEPARIN CALCIUM
     Indication: Subclavian vein thrombosis
     Dates: start: 20230204, end: 20230213
  10. PROPOFOL [Concomitant]
     Active Substance: PROPOFOL
     Indication: Status epilepticus
     Dates: start: 20230124, end: 20230213
  11. SYNACTHEN [Concomitant]
     Indication: Product used for unknown indication
     Dosage: STRENGTH: 0.25 MG/1 ML
     Dates: start: 20230208, end: 20230213
  12. MIDAZOLAM HYDROCHLORIDE [Concomitant]
     Active Substance: MIDAZOLAM HYDROCHLORIDE
     Indication: Status epilepticus
     Dates: start: 20221231, end: 20230213
  13. TOPIRAMATE [Concomitant]
     Active Substance: TOPIRAMATE
     Indication: Status epilepticus
     Dates: start: 20230118
  14. FUROSEMIDE [Concomitant]
     Active Substance: FUROSEMIDE
     Indication: Oliguria
     Dates: start: 20230208, end: 20230214
  15. CALCIPARINE [Concomitant]
     Active Substance: HEPARIN CALCIUM
     Indication: Subclavian vein thrombosis
     Dates: start: 20230217
  16. PERAMPANEL [Concomitant]
     Active Substance: PERAMPANEL
     Indication: Status epilepticus
     Dates: start: 20230110, end: 20230130
  17. PROPOFOL [Concomitant]
     Active Substance: PROPOFOL
     Indication: Status epilepticus
     Dates: start: 20230123, end: 20230123

REACTIONS (1)
  - Mixed liver injury [Recovering/Resolving]

NARRATIVE: CASE EVENT DATE: 20230214
